FAERS Safety Report 9015625 (Version 1)
Quarter: 2013Q1

REPORT INFORMATION
  Report Type: Spontaneous
  Country: TR (occurrence: None)
  Receive Date: 20130102
  Receipt Date: 20130102
  Transmission Date: 20140127
  Serious: Yes (Other)
  Sender: FDA-Public Use
  Company Number: DSA_61601_2012

PATIENT
  Age: 55 Year
  Sex: Male

DRUGS (5)
  1. FLUOROURACIL (FLUOROURACIL) [Suspect]
     Dosage: EVERY CYCLE
  2. DOCETAXEL (DOCETAXEL) [Suspect]
     Indication: NON-SMALL CELL LUNG CANCER METASTATIC
     Dosage: EVERY CYCLE
  3. DOCETAXEL (DOCETAXEL) [Suspect]
     Indication: NASOPHARYNGEAL CANCER
     Dosage: EVERY CYCLE
  4. CISPLATIN (CISPLATIN) [Suspect]
     Indication: NON-SMALL CELL LUNG CANCER METASTATIC
     Dosage: EVERY CYCLE
  5. CISPLATIN (CISPLATIN) [Suspect]
     Indication: NASOPHARYNGEAL CANCER
     Dosage: EVERY CYCLE

REACTIONS (1)
  - Pericarditis [None]
